FAERS Safety Report 7495701-5 (Version None)
Quarter: 2011Q2

REPORT INFORMATION
  Report Type: 
  Country: None (occurrence: None)
  Receive Date: 20110523
  Receipt Date: 20110511
  Transmission Date: 20111010
  Serious: Yes (Hospitalization, Other)
  Sender: FDA-Public Use
  Company Number: JP-JNJFOC-20110500275

PATIENT
  Age: 70 Year
  Sex: Female

DRUGS (9)
  1. VINCRISTINE [Suspect]
     Route: 065
  2. DOXORUBICIN HYDROCHLORIDE [Suspect]
     Indication: MULTIPLE MYELOMA
     Route: 042
  3. PREDNISOLONE [Suspect]
     Indication: MULTIPLE MYELOMA
     Route: 065
  4. DEXAMETHASONE [Suspect]
     Route: 065
  5. VINCRISTINE [Suspect]
     Indication: MULTIPLE MYELOMA
     Route: 065
  6. VINCRISTINE [Suspect]
     Route: 065
  7. DEXAMETHASONE [Suspect]
     Indication: MULTIPLE MYELOMA
     Route: 065
  8. DEXAMETHASONE [Suspect]
     Route: 065
  9. MELPHALAN HYDROCHLORIDE [Suspect]
     Indication: MULTIPLE MYELOMA
     Route: 065

REACTIONS (4)
  - EPSTEIN-BARR VIRUS INFECTION [None]
  - TYPE 1 DIABETES MELLITUS [None]
  - DIABETIC KETOACIDOSIS [None]
  - LIVER DISORDER [None]
